FAERS Safety Report 16842743 (Version 1)
Quarter: 2019Q3

REPORT INFORMATION
  Report Type: Spontaneous
  Country: US (occurrence: US)
  Receive Date: 20190801
  Receipt Date: 20190801
  Transmission Date: 20191005
  Serious: Yes (Hospitalization)
  Sender: FDA-Public Use
  Company Number: None

PATIENT
  Age: 48 Year
  Sex: Male

DRUGS (2)
  1. GENVOYA [Suspect]
     Active Substance: COBICISTAT\ELVITEGRAVIR\EMTRICITABINE\TENOFOVIR ALAFENAMIDE FUMARATE
     Indication: HIV INFECTION
     Dosage: ?          OTHER DOSE:150/150/200 DF;?
     Route: 048
     Dates: start: 20180905
  2. TACROLIMUS 0.5MG [Suspect]
     Active Substance: TACROLIMUS
     Indication: TRANSPLANT
     Dates: start: 20180911

REACTIONS (1)
  - Pneumonia [None]

NARRATIVE: CASE EVENT DATE: 20190723
